FAERS Safety Report 8483470 (Version 2)
Quarter: 2012Q4

REPORT INFORMATION
  Report Type: 
  Country: US (occurrence: US)
  Receive Date: 20120329
  Receipt Date: 20121206
  Transmission Date: 20130627
  Serious: Yes (Hospitalization, Other)
  Sender: FDA-Public Use
  Company Number: US-US-EMD SERONO, INC.-7121292

PATIENT
  Sex: Female
  Weight: 59 kg

DRUGS (3)
  1. REBIF [Suspect]
     Indication: MULTIPLE SCLEROSIS
     Dates: start: 2006, end: 20120209
  2. REBIF [Suspect]
     Route: 058
     Dates: start: 20110520, end: 20120209
  3. INSULIN [Concomitant]
     Indication: DIABETES MELLITUS
     Dates: start: 1972

REACTIONS (4)
  - Systemic lupus erythematosus [Not Recovered/Not Resolved]
  - Scleroderma [Not Recovered/Not Resolved]
  - Multiple fractures [Unknown]
  - Fall [Unknown]
